FAERS Safety Report 4766549-7 (Version None)
Quarter: 2005Q3

REPORT INFORMATION
  Report Type: 
  Country: None (occurrence: None)
  Receive Date: 20050909
  Receipt Date: 20050427
  Transmission Date: 20060218
  Serious: Yes (Hospitalization, Other)
  Sender: FDA-Public Use
  Company Number: 2005049124

PATIENT
  Age: 25 Year
  Sex: Female
  Weight: 46 kg

DRUGS (4)
  1. UROBIOTIC [Suspect]
     Indication: URINARY TRACT INFECTION
     Dosage: 300 MG (100  MG, 3 IN 1 D), ORAL
     Route: 048
     Dates: start: 20050317, end: 20050320
  2. CIPROFLOXACIN [Concomitant]
  3. VENLAFAXINE HCL [Concomitant]
  4. VITAMINS (VITAMINS) [Concomitant]

REACTIONS (4)
  - BLOOD ALBUMIN INCREASED [None]
  - NEPHROLITHIASIS [None]
  - PROTEIN TOTAL INCREASED [None]
  - UROBILIN URINE PRESENT [None]
